FAERS Safety Report 19227075 (Version 1)
Quarter: 2021Q2

REPORT INFORMATION
  Report Type: Spontaneous
  Country: TR (occurrence: TR)
  Receive Date: 20210507
  Receipt Date: 20210507
  Transmission Date: 20210717
  Serious: Yes (Hospitalization, Other)
  Sender: FDA-Public Use
  Company Number: TR-GRANULES-TR-2021GRALIT00275

PATIENT
  Age: 32 Year
  Sex: Male

DRUGS (6)
  1. PHENIRAMINE [Interacting]
     Active Substance: PHENIRAMINE
     Indication: SUPPORTIVE CARE
     Route: 065
  2. AMIODARONE [Interacting]
     Active Substance: AMIODARONE
     Indication: SUPPORTIVE CARE
     Route: 065
  3. NAPROXEN. [Suspect]
     Active Substance: NAPROXEN
     Indication: HEADACHE
     Route: 065
  4. DEXAMETHASONE. [Interacting]
     Active Substance: DEXAMETHASONE
     Indication: SUPPORTIVE CARE
     Route: 065
  5. EPINEPHRINE. [Interacting]
     Active Substance: EPINEPHRINE
     Indication: ANOXIA
     Route: 065
  6. SODIUM CHLORIDE. [Interacting]
     Active Substance: SODIUM CHLORIDE
     Indication: SUPPORTIVE CARE
     Route: 065

REACTIONS (2)
  - Kounis syndrome [Recovered/Resolved]
  - Atrial fibrillation [Recovered/Resolved]
